FAERS Safety Report 21873690 (Version 6)
Quarter: 2023Q2

REPORT INFORMATION
  Report Type: Report from Study
  Country: CA (occurrence: CA)
  Receive Date: 20230117
  Receipt Date: 20230425
  Transmission Date: 20230722
  Serious: Yes (Hospitalization, Other)
  Sender: FDA-Public Use
  Company Number: CA-TAIHO-2023-000242

PATIENT
  Age: 53 Year
  Sex: Male

DRUGS (1)
  1. LONSURF [Suspect]
     Active Substance: TIPIRACIL HYDROCHLORIDE\TRIFLURIDINE
     Indication: Colorectal cancer metastatic
     Dosage: DOSE, FREQUENCY AND CURRENT CYCLE WAS UNKNOWN.
     Route: 048
     Dates: start: 20221212, end: 20230331

REACTIONS (5)
  - Blood iron decreased [Unknown]
  - Intestinal perforation [Unknown]
  - Haemoglobin decreased [Unknown]
  - Disease progression [Unknown]
  - White blood cell count decreased [Unknown]
